FAERS Safety Report 8096544-4 (Version None)
Quarter: 2012Q1

REPORT INFORMATION
  Report Type: 
  Country: None (occurrence: None)
  Receive Date: 20120129
  Receipt Date: 20111121
  Transmission Date: 20120608
  Serious: No
  Sender: FDA-Public Use
  Company Number: US-ABBOTT-11P-163-0865146-00

PATIENT
  Age: 70 Year
  Sex: Female

DRUGS (14)
  1. LOSARTAN POTASSIUM [Concomitant]
     Indication: HYPERTENSION
     Dosage: DAILY
  2. CALCIUM [Concomitant]
     Indication: PRODUCT USED FOR UNKNOWN INDICATION
  3. CINNAMON [Concomitant]
     Indication: PRODUCT USED FOR UNKNOWN INDICATION
     Dosage: DAILY
  4. MULTIVITAMIN [Concomitant]
     Indication: PRODUCT USED FOR UNKNOWN INDICATION
     Dosage: DAILY
  5. CLARITIN [Concomitant]
     Indication: PRODUCT USED FOR UNKNOWN INDICATION
     Dosage: OVER THE COUNTER DAILY
  6. FENOFIBRATE [Concomitant]
     Indication: HYPERTENSION
     Dosage: DAILY
  7. TRIAMTERENE AND HYDROCHLOROTHIAZIDE [Concomitant]
     Indication: HYPERTENSION
     Dosage: DAILY
  8. BENADRYL [Concomitant]
     Indication: HYPERSENSITIVITY
     Dosage: DAILY
  9. HUMIRA [Suspect]
     Indication: PSORIASIS
     Dosage: EVERY OTHER WEEK
     Dates: start: 20110806
  10. PRILOSEC [Concomitant]
     Indication: PRODUCT USED FOR UNKNOWN INDICATION
     Dosage: OVER THE COUNTER DAILY
  11. SIMVASTATIN [Concomitant]
     Indication: BLOOD CHOLESTEROL INCREASED
  12. AMLODIPINE [Concomitant]
     Indication: HYPERTENSION
     Dosage: DAILY
  13. GLUCOSAMINE [Concomitant]
     Indication: PRODUCT USED FOR UNKNOWN INDICATION
     Dosage: DAILY
  14. ASPIRIN [Concomitant]
     Indication: PRODUCT USED FOR UNKNOWN INDICATION
     Dosage: DAILY IN ADDITION TO THE SIMVASTATIN

REACTIONS (4)
  - PSORIASIS [None]
  - DRUG INEFFECTIVE [None]
  - SKIN FISSURES [None]
  - ECZEMA [None]
